FAERS Safety Report 4759332-X (Version None)
Quarter: 2005Q3

REPORT INFORMATION
  Report Type: 
  Country: None (occurrence: None)
  Receive Date: 20050831
  Receipt Date: 20050818
  Transmission Date: 20060218
  Serious: Yes (Other)
  Sender: FDA-Public Use
  Company Number: 2005115598

PATIENT
  Age: 52 Year
  Sex: Male

DRUGS (15)
  1. VFEND [Suspect]
     Indication: ACUTE MYELOID LEUKAEMIA
     Dosage: 400 MG, ORAL
     Route: 048
     Dates: end: 20050816
  2. INDERAL [Suspect]
     Indication: ILL-DEFINED DISORDER
     Dosage: 30 MG, ORAL
     Route: 048
     Dates: start: 20050729, end: 20050808
  3. VANCOMYCIN [Concomitant]
  4. OMEGACIN (IMIPENEM) [Concomitant]
  5. NORVASC [Concomitant]
  6. DIGOXIN [Concomitant]
  7. PREDNISONE [Concomitant]
  8. ESTAZOLAM [Concomitant]
  9. VASOLAN (VERAPAMIL HYDROCHLORIDE) [Concomitant]
  10. PURSENNID (SENNA LEAF) [Concomitant]
  11. DESMOPRESSIN ACETATE [Concomitant]
  12. FAMOTIDINE [Concomitant]
  13. PN (AMINO ACIDS/CARBOHYDRATES/MINERALS/VITAMINS, ) [Concomitant]
  14. ASPARA K (ASPARATE POTASSIUM) [Concomitant]
  15. PILTRESSIN (VASOPRESSIN) [Concomitant]

REACTIONS (3)
  - BLISTER [None]
  - BLOOD CREATINE PHOSPHOKINASE INCREASED [None]
  - RASH [None]
